FAERS Safety Report 20340400 (Version 2)
Quarter: 2024Q3

REPORT INFORMATION
  Report Type: Report from Study
  Country: US (occurrence: US)
  Receive Date: 20220117
  Receipt Date: 20240925
  Transmission Date: 20241017
  Serious: No
  Sender: GLAXOSMITHKLINE
  Company Number: US-GLAXOSMITHKLINE-US2022AMR006553

PATIENT
  Sex: Female

DRUGS (1)
  1. NIRAPARIB [Suspect]
     Active Substance: NIRAPARIB
     Indication: Ovarian cancer
     Dosage: 100 MG, QD
     Dates: start: 202104

REACTIONS (3)
  - Malaise [Not Recovered/Not Resolved]
  - Anxiety [Not Recovered/Not Resolved]
  - Off label use [Unknown]
